FAERS Safety Report 4388918-X (Version None)
Quarter: 2004Q2

REPORT INFORMATION
  Report Type: 
  Country: None (occurrence: None)
  Receive Date: 20040628
  Receipt Date: 20040614
  Transmission Date: 20050107
  Serious: Yes (Hospitalization)
  Sender: FDA-Public Use
  Company Number: 2004-BP-03904NB

PATIENT
  Age: 57 Year
  Sex: Male

DRUGS (7)
  1. MICARDIS [Suspect]
     Indication: HYPERTENSION
     Dosage: 40 MG (NR) PO
     Route: 048
     Dates: start: 20040408, end: 20040421
  2. MARZULENE S (MARZULENE S) (GR) [Suspect]
     Indication: GASTRIC ULCER
     Dosage: 1.5 G (NR) PO
     Route: 048
     Dates: start: 20040404, end: 20040421
  3. ASPIRIN [Concomitant]
  4. TICLOPIDINE HCL [Concomitant]
  5. LIPITOR [Concomitant]
  6. SIGMART (NICORANDIL) (TA) [Concomitant]
  7. ARTIST (CARVEDILOL) (TA) [Concomitant]

REACTIONS (5)
  - ANOREXIA [None]
  - HEPATIC FUNCTION ABNORMAL [None]
  - JAUNDICE [None]
  - LIVER DISORDER [None]
  - PRURITUS [None]
